FAERS Safety Report 19679980 (Version 1)
Quarter: 2021Q3

REPORT INFORMATION
  Report Type: Spontaneous
  Country: SE (occurrence: SE)
  Receive Date: 20210809
  Receipt Date: 20210809
  Transmission Date: 20211014
  Serious: Yes (Death, Hospitalization, Other)
  Sender: FDA-Public Use
  Company Number: NVSC2021SE178733

PATIENT
  Age: 68 Year
  Sex: Female
  Weight: 75.1 kg

DRUGS (40)
  1. PARACETAMOL [Concomitant]
     Active Substance: ACETAMINOPHEN
     Indication: PRODUCT USED FOR UNKNOWN INDICATION
     Dosage: UNK
     Route: 065
     Dates: start: 20210514, end: 20210624
  2. CETIRIZIN [Concomitant]
     Active Substance: CETIRIZINE HYDROCHLORIDE
     Indication: PRODUCT USED FOR UNKNOWN INDICATION
     Dosage: UNK
     Route: 065
     Dates: start: 20210514, end: 20210531
  3. DIGOXIN. [Concomitant]
     Active Substance: DIGOXIN
     Indication: PRODUCT USED FOR UNKNOWN INDICATION
     Dosage: UNK
     Route: 065
     Dates: start: 20210705, end: 20210706
  4. OXALIPLATIN. [Suspect]
     Active Substance: OXALIPLATIN
     Dosage: UNK (181 MILLIGRAM, SINGLE)
     Route: 042
     Dates: start: 20210326, end: 20210326
  5. OXALIPLATIN. [Suspect]
     Active Substance: OXALIPLATIN
     Dosage: UNK (182 MILLIGRAM, SINGLE)
     Route: 042
     Dates: start: 20210517, end: 20210517
  6. GEMCITABINE. [Suspect]
     Active Substance: GEMCITABINE
     Dosage: UNK (1810 MILLIGRAM, SINGLE)
     Route: 042
     Dates: start: 20210326, end: 20210326
  7. SPIRONOLACTON [Concomitant]
     Active Substance: SPIRONOLACTONE
     Indication: PRODUCT USED FOR UNKNOWN INDICATION
     Dosage: UNK
     Route: 065
     Dates: start: 20210618, end: 20210630
  8. DALTEPARIN [Concomitant]
     Active Substance: DALTEPARIN
     Indication: PRODUCT USED FOR UNKNOWN INDICATION
     Dosage: UNK
     Route: 065
     Dates: start: 20210326, end: 20210525
  9. OXALIPLATIN. [Suspect]
     Active Substance: OXALIPLATIN
     Dosage: UNK (183 MILLIGRAM, SINGLE)
     Route: 042
     Dates: start: 20210223, end: 20210223
  10. OXALIPLATIN. [Suspect]
     Active Substance: OXALIPLATIN
     Dosage: UNK (182 MILLIGRAM, SINGLE)
     Route: 042
     Dates: start: 20210312, end: 20210312
  11. OXALIPLATIN. [Suspect]
     Active Substance: OXALIPLATIN
     Dosage: UNK (182 MILLIGRAM, SINGLE)
     Route: 042
     Dates: start: 20210429, end: 20210429
  12. GEMCITABINE. [Suspect]
     Active Substance: GEMCITABINE
     Indication: DIFFUSE LARGE B-CELL LYMPHOMA STAGE IV
     Dosage: UNK (1870 MILLIGRAM, SINGLE)
     Route: 042
     Dates: start: 20210202, end: 20210202
  13. GEMCITABINE. [Suspect]
     Active Substance: GEMCITABINE
     Dosage: UNK (1820 MILLIGRAM, SINGLE)
     Route: 042
     Dates: start: 20210312, end: 20210312
  14. GEMCITABINE. [Suspect]
     Active Substance: GEMCITABINE
     Dosage: UNK (1820 MILLIGRAM, SINGLE)
     Route: 042
     Dates: start: 20210517, end: 20210517
  15. ALLOPURINOL. [Concomitant]
     Active Substance: ALLOPURINOL
     Indication: PRODUCT USED FOR UNKNOWN INDICATION
     Dosage: UNK
     Route: 065
     Dates: start: 20210517, end: 20210517
  16. CALCIUM POLYSTYRENE SULFONATE [Concomitant]
     Active Substance: CALCIUM POLYSTYRENE SULFONATE
     Indication: PRODUCT USED FOR UNKNOWN INDICATION
     Dosage: UNK
     Route: 065
     Dates: start: 20210701, end: 20210704
  17. FIBRINOGEN [Concomitant]
     Active Substance: FIBRINOGEN HUMAN
     Indication: PRODUCT USED FOR UNKNOWN INDICATION
     Dosage: UNK
     Route: 065
     Dates: start: 20210707, end: 20210707
  18. FUROSEMIDE. [Concomitant]
     Active Substance: FUROSEMIDE
     Indication: PRODUCT USED FOR UNKNOWN INDICATION
     Dosage: UNK
     Route: 065
     Dates: start: 20210613, end: 20210704
  19. GEMCITABINE. [Suspect]
     Active Substance: GEMCITABINE
     Dosage: UNK (1810 MILLIGRAM, SINGLE)
     Route: 042
     Dates: start: 20210413, end: 20210413
  20. SOLU?MEDROL [Concomitant]
     Active Substance: METHYLPREDNISOLONE SODIUM SUCCINATE
     Indication: PRODUCT USED FOR UNKNOWN INDICATION
     Dosage: UNK
     Route: 065
     Dates: start: 20210319
  21. ZOPICLONE [Concomitant]
     Active Substance: ZOPICLONE
     Indication: PRODUCT USED FOR UNKNOWN INDICATION
     Dosage: UNK
     Route: 065
     Dates: start: 20200318, end: 20210704
  22. DEXAMETHASONE SODIUM PHOSPHATE. [Concomitant]
     Active Substance: DEXAMETHASONE SODIUM PHOSPHATE
     Indication: PRODUCT USED FOR UNKNOWN INDICATION
     Dosage: UNK
     Route: 065
     Dates: start: 20210707, end: 20210710
  23. ONDANSETRON [Concomitant]
     Active Substance: ONDANSETRON
     Indication: PRODUCT USED FOR UNKNOWN INDICATION
     Dosage: UNK
     Route: 065
     Dates: start: 20210517, end: 20210517
  24. TOCILIZUMAB. [Concomitant]
     Active Substance: TOCILIZUMAB
     Indication: PRODUCT USED FOR UNKNOWN INDICATION
     Dosage: UNK
     Route: 065
     Dates: start: 20210707, end: 20210707
  25. COLECALCIFEROL [Concomitant]
     Active Substance: CHOLECALCIFEROL
     Indication: PRODUCT USED FOR UNKNOWN INDICATION
     Dosage: UNK
     Route: 065
     Dates: start: 20200408, end: 20210704
  26. OXALIPLATIN. [Suspect]
     Active Substance: OXALIPLATIN
     Dosage: UNK (181 MILLIGRAM, SINGLE )
     Route: 042
     Dates: start: 20210413, end: 20210413
  27. GEMCITABINE. [Suspect]
     Active Substance: GEMCITABINE
     Dosage: UNK (1820 MILLIGRAM, SINGLE)
     Route: 042
     Dates: start: 20210531, end: 20210531
  28. CALCIUM CARBONATE. [Concomitant]
     Active Substance: CALCIUM CARBONATE
     Indication: PRODUCT USED FOR UNKNOWN INDICATION
     Dosage: UNK
     Route: 065
     Dates: start: 20200402, end: 20210702
  29. FILGRASTIM [Concomitant]
     Active Substance: FILGRASTIM
     Indication: PRODUCT USED FOR UNKNOWN INDICATION
     Dosage: UNK
     Route: 065
     Dates: start: 20210612, end: 20210706
  30. GEMCITABINE. [Suspect]
     Active Substance: GEMCITABINE
     Dosage: UNK (1820 MILLIGRAM, SINGLE)
     Route: 042
     Dates: start: 20210429, end: 20210429
  31. ACICLOVIR [Concomitant]
     Active Substance: ACYCLOVIR
     Indication: PRODUCT USED FOR UNKNOWN INDICATION
     Dosage: UNK
     Route: 065
     Dates: start: 20210215, end: 20210624
  32. ATENOLOL. [Concomitant]
     Active Substance: ATENOLOL
     Indication: PRODUCT USED FOR UNKNOWN INDICATION
     Dosage: UNK
     Route: 065
     Dates: start: 20210616, end: 20210704
  33. PEGFILGRASTIM [Concomitant]
     Active Substance: PEGFILGRASTIM
     Indication: PRODUCT USED FOR UNKNOWN INDICATION
     Dosage: UNK
     Route: 065
     Dates: start: 20210520, end: 20210520
  34. OXALIPLATIN. [Suspect]
     Active Substance: OXALIPLATIN
     Indication: DIFFUSE LARGE B-CELL LYMPHOMA STAGE IV
     Dosage: UNK (187 MILLIGRAM, SINGLE)
     Route: 042
     Dates: start: 20210202, end: 20210202
  35. OXALIPLATIN. [Suspect]
     Active Substance: OXALIPLATIN
     Dosage: UNK (182 MILLIGRAM, SINGLE)
     Route: 042
     Dates: start: 20210531, end: 20210531
  36. GEMCITABINE. [Suspect]
     Active Substance: GEMCITABINE
     Dosage: UNK (1830 MILLIGRAM, SINGLE)
     Route: 042
     Dates: start: 20210223, end: 20210223
  37. PANTOPRAZOLE [Concomitant]
     Active Substance: PANTOPRAZOLE
     Indication: PRODUCT USED FOR UNKNOWN INDICATION
     Dosage: UNK
     Route: 065
     Dates: start: 20200511, end: 20210704
  38. PREDNISOLONE. [Concomitant]
     Active Substance: PREDNISOLONE
     Indication: PRODUCT USED FOR UNKNOWN INDICATION
     Dosage: UNK
     Route: 065
     Dates: start: 20210514, end: 20210531
  39. ACICLOVIR [Concomitant]
     Active Substance: ACYCLOVIR
     Dosage: UNK
     Route: 065
     Dates: start: 20200916
  40. KALIUMCHLORIDE [Concomitant]
     Indication: PRODUCT USED FOR UNKNOWN INDICATION
     Dosage: UNK
     Route: 065
     Dates: start: 20210608, end: 20210614

REACTIONS (4)
  - Cytokine release syndrome [Recovered/Resolved]
  - Multiple organ dysfunction syndrome [Fatal]
  - Ascites [Fatal]
  - Off label use [Unknown]

NARRATIVE: CASE EVENT DATE: 20210606
